FAERS Safety Report 20838444 (Version 2)
Quarter: 2022Q2

REPORT INFORMATION
  Report Type: Spontaneous
  Country: GB (occurrence: GB)
  Receive Date: 20220517
  Receipt Date: 20220525
  Transmission Date: 20220720
  Serious: Yes (Hospitalization)
  Sender: FDA-Public Use
  Company Number: GB-Dawa-012210

PATIENT
  Age: 4 Decade
  Sex: Female

DRUGS (17)
  1. ZOLEDRONIC ACID [Suspect]
     Active Substance: ZOLEDRONIC ACID
     Indication: Hypercalcaemia
     Dosage: 4 MG/100 ML INTRAVENOUSLY OVER 15 MIN
     Route: 042
  2. POTASSIUM CHLORIDE\SODIUM CHLORIDE [Suspect]
     Active Substance: POTASSIUM CHLORIDE\SODIUM CHLORIDE
     Indication: Hypokalaemia
     Dosage: 40 MILLIMOLE, Q4H SODIUM-CHLORIDE 0.9 PERCENT 1 L WITH POTASSIUM-CHLORIDE 40 MMOL 4 HOURLY (X3)
     Route: 042
  3. POTASSIUM CHLORIDE\SODIUM CHLORIDE [Suspect]
     Active Substance: POTASSIUM CHLORIDE\SODIUM CHLORIDE
     Indication: Hypercalcaemia
     Dosage: 40 MILLIMOLE, Q8H SODIUM-CHLORIDE 0.9 PERCENT 1 L WITH POTASSIUM-CHLORIDE 40 MMOL 8 HOURLY
     Route: 042
  4. POTASSIUM CHLORIDE\SODIUM CHLORIDE [Suspect]
     Active Substance: POTASSIUM CHLORIDE\SODIUM CHLORIDE
     Dosage: 40 MILLIMOLE, Q6H SODIUM-CHLORIDE 0.9 PERCENT 1 L WITH POTASSIUM-CHLORIDE 40 MMOL 6 HOURLY
     Route: 042
  5. POTASSIUM CHLORIDE\SODIUM CHLORIDE [Suspect]
     Active Substance: POTASSIUM CHLORIDE\SODIUM CHLORIDE
     Dosage: 20 MILLIMOLE, Q8H SODIUM-CHLORIDE 0.9 PERCENT 1 L WITH POTASSIUM-CHLORIDE 20 MMOL 8 HOURLY
     Route: 042
  6. POTASSIUM BICARBONATE\POTASSIUM CHLORIDE [Suspect]
     Active Substance: POTASSIUM BICARBONATE\POTASSIUM CHLORIDE
     Indication: Hypokalaemia
     Dosage: UNK, TID 1 WEEK OF ORAL POTASSIUM-BICARBONATE/POTASSIUM-CHLORIDE (TWO SACHETS THREE TIMES A DAY)
     Route: 048
  7. SODIUM CHLORIDE [Suspect]
     Active Substance: SODIUM CHLORIDE
     Indication: Hypercalcaemia
     Dosage: 1 LITER, Q6H 1 L 6 HOURLY (X2)
     Route: 042
  8. SODIUM CHLORIDE [Suspect]
     Active Substance: SODIUM CHLORIDE
     Indication: Hypocalcaemia
     Dosage: 500 MILLILITER
     Route: 042
  9. SODIUM CHLORIDE [Suspect]
     Active Substance: SODIUM CHLORIDE
     Dosage: 100 MILLILITER
     Route: 042
  10. POTASSIUM PHOSPHATE\SODIUM PHOSPHATE [Suspect]
     Active Substance: POTASSIUM PHOSPHATE\SODIUM PHOSPHATE
     Indication: Hypokalaemia
     Dosage: 250 ML WITH 25 MMOL 12 HOURLY
     Route: 042
  11. MAGNESIUM SULFATE [Suspect]
     Active Substance: MAGNESIUM SULFATE
     Indication: Hypomagnesaemia
     Dosage: 20 MILLIMOLE, Q4H
  12. MAGNESIUM [Suspect]
     Active Substance: MAGNESIUM
     Indication: Hypomagnesaemia
     Dosage: 10 MMOL MAGNESIUM 4 HOURLY
  13. CALCIUM GLUCONATE [Suspect]
     Active Substance: CALCIUM GLUCONATE
     Indication: Hypocalcaemia
     Dosage: 20 MILLILITER, QH 20 ML 4.5 MMOL 1 HOURLY
     Route: 042
  14. CALCIUM GLUCONATE [Suspect]
     Active Substance: CALCIUM GLUCONATE
     Dosage: 100 ML 22.5 MMOL 10 HOURLY
     Route: 042
  15. CALCIUM\CHOLECALCIFEROL [Suspect]
     Active Substance: CALCIUM\CHOLECALCIFEROL
     Indication: Hypocalcaemia
     Dosage: 2 DOSAGE FORM, BID TWO TABLETS TWO TIMES PER DAY
  16. BACLOFEN [Concomitant]
     Active Substance: BACLOFEN
     Indication: Tetany
     Dosage: 5 MILLIGRAM, TID
     Route: 048
  17. DEXTROSE [Concomitant]
     Active Substance: DEXTROSE
     Indication: Product used for unknown indication
     Dosage: 100 MILLILITER
     Route: 042

REACTIONS (4)
  - Tetany [Recovered/Resolved]
  - Paraesthesia oral [Recovered/Resolved]
  - Hypocalcaemia [Recovered/Resolved]
  - Therapy non-responder [Unknown]
